FAERS Safety Report 23310766 (Version 1)
Quarter: 2023Q4

REPORT INFORMATION
  Report Type: Report from Study
  Country: CA (occurrence: CA)
  Receive Date: 20231218
  Receipt Date: 20231218
  Transmission Date: 20240110
  Serious: Yes (Hospitalization, Other)
  Sender: FDA-Public Use
  Company Number: CA-ABBVIE-5541013

PATIENT
  Sex: Male

DRUGS (2)
  1. RINVOQ [Suspect]
     Active Substance: UPADACITINIB
     Indication: Rheumatoid arthritis
     Dosage: FORM STRENGTH: 15 MILLIGRAM
     Route: 048
     Dates: start: 20220421
  2. XARELTO [Concomitant]
     Active Substance: RIVAROXABAN
     Indication: Anticoagulant therapy
     Route: 065

REACTIONS (10)
  - Gastrointestinal haemorrhage [Recovering/Resolving]
  - Polyp [Unknown]
  - Haemoglobin decreased [Recovering/Resolving]
  - Lymphocyte count decreased [Recovering/Resolving]
  - Parkinson^s disease [Unknown]
  - Hypertension [Unknown]
  - Dementia [Unknown]
  - Atrial fibrillation [Unknown]
  - Faeces discoloured [Unknown]
  - Normocytic anaemia [Not Recovered/Not Resolved]

NARRATIVE: CASE EVENT DATE: 20230101
